FAERS Safety Report 13379844 (Version 1)
Quarter: 2017Q1

REPORT INFORMATION
  Report Type: Spontaneous
  Country: US (occurrence: US)
  Receive Date: 20170328
  Receipt Date: 20170328
  Transmission Date: 20170429
  Serious: No
  Sender: FDA-Public Use
  Company Number: US-ELI_LILLY_AND_COMPANY-US201703002820

PATIENT
  Sex: Female

DRUGS (2)
  1. SOMATROPIN [Suspect]
     Active Substance: SOMATROPIN
     Indication: GROWTH HORMONE DEFICIENCY
     Dosage: 0.25 MG, UNKNOWN
     Route: 065
     Dates: start: 20170223
  2. SOMATROPIN [Suspect]
     Active Substance: SOMATROPIN
     Indication: FATIGUE
     Dosage: 0.175 MG, SINGLE
     Route: 065
     Dates: start: 20170305

REACTIONS (2)
  - Extra dose administered [Unknown]
  - Underdose [Unknown]

NARRATIVE: CASE EVENT DATE: 20170223
